FAERS Safety Report 23414126 (Version 1)
Quarter: 2024Q1

REPORT INFORMATION
  Report Type: Spontaneous
  Country: US (occurrence: US)
  Receive Date: 20240117
  Receipt Date: 20240117
  Transmission Date: 20240409
  Serious: No
  Sender: FDA-Public Use
  Company Number: US-ABBVIE-5585959

PATIENT
  Sex: Female

DRUGS (1)
  1. SKYRIZI [Suspect]
     Active Substance: RISANKIZUMAB-RZAA
     Indication: Crohn^s disease
     Dosage: FORM STRENGTH: 360 MILLIGRAM,?FREQUENCY TEXT: UNKNOWN,?START DATE TEXT: UNKNOWN,?STOP DATE TEXT: ...
     Route: 058

REACTIONS (2)
  - Injection site pain [Unknown]
  - Injection site urticaria [Unknown]
